FAERS Safety Report 8001713-5 (Version None)
Quarter: 2011Q4

REPORT INFORMATION
  Report Type: 
  Country: None (occurrence: None)
  Receive Date: 20111220
  Receipt Date: 20111213
  Transmission Date: 20120403
  Serious: No
  Sender: FDA-Public Use
  Company Number: 2011SP058211

PATIENT
  Age: 14 Year
  Sex: Female

DRUGS (1)
  1. SAPHRIS [Suspect]
     Indication: SCHIZOPHRENIA
     Dosage: 5 MG;QD;SL
     Route: 060
     Dates: start: 20110501

REACTIONS (2)
  - DYSPNOEA [None]
  - CHEST PAIN [None]
